FAERS Safety Report 4954146-X (Version None)
Quarter: 2006Q1

REPORT INFORMATION
  Report Type: 
  Country: None (occurrence: None)
  Receive Date: 20060321
  Receipt Date: 20060313
  Transmission Date: 20060701
  Serious: Yes (Death, Life-Threatening, Hospitalization)
  Sender: FDA-Public Use
  Company Number: 27386

PATIENT
  Age: 80 Year
  Sex: Male

DRUGS (6)
  1. FLECAINIDE ACETATE [Suspect]
     Dosage: SEE IMAGE
     Route: 048
     Dates: start: 20020601, end: 20050822
  2. FLECAINIDE ACETATE [Suspect]
     Dosage: SEE IMAGE
     Route: 048
     Dates: start: 20050901
  3. PERINDOPRIL ERUMINE [Suspect]
     Dosage: 8 MG (4 MG, 2 IN 1 DAY(S))
     Route: 048
     Dates: start: 20040501, end: 20050817
  4. PLAVIX [Suspect]
     Dosage: 75 MG (75 MG, 1 IN 1 DAY (S))
     Route: 048
     Dates: end: 20050801
  5. ZOCOR [Suspect]
     Dosage: 40 MG
     Route: 048
     Dates: start: 20020401, end: 20050801
  6. TENORMIN [Suspect]
     Dosage: 100 MG
     Route: 048
     Dates: start: 20011201, end: 20050812

REACTIONS (5)
  - ACUTE RESPIRATORY FAILURE [None]
  - DRUG INEFFECTIVE [None]
  - PNEUMONITIS [None]
  - PULMONARY FIBROSIS [None]
  - PULMONARY HYPERTENSION [None]
